FAERS Safety Report 8498073-2 (Version None)
Quarter: 2012Q3

REPORT INFORMATION
  Report Type: 
  Country: None (occurrence: None)
  Receive Date: 20120709
  Receipt Date: 20120618
  Transmission Date: 20120928
  Serious: No
  Sender: FDA-Public Use
  Company Number: US-AMGEN-USASP2012035459

PATIENT
  Age: 60 Year
  Sex: Female

DRUGS (2)
  1. ENBREL [Suspect]
     Indication: RHEUMATOID ARTHRITIS
     Dosage: 50 MG, QWK
     Dates: start: 20060101, end: 20120430
  2. TREXALL [Concomitant]
     Dosage: 6 MG, QWK
     Dates: start: 20060101

REACTIONS (3)
  - RHEUMATOID ARTHRITIS [None]
  - MASS [None]
  - NERVE COMPRESSION [None]
